FAERS Safety Report 4843853-5 (Version None)
Quarter: 2005Q4

REPORT INFORMATION
  Report Type: 
  Country: None (occurrence: None)
  Receive Date: 20051130
  Receipt Date: 20051130
  Transmission Date: 20060501
  Serious: No
  Sender: FDA-Public Use
  Company Number: None

PATIENT
  Age: 74 Year

DRUGS (2)
  1. NATRECOR [Suspect]
     Dosage: ;;0;0
  2. LASIX [Suspect]

REACTIONS (1)
  - BLOOD CREATININE INCREASED [None]
